FAERS Safety Report 7536613-8 (Version None)
Quarter: 2011Q2

REPORT INFORMATION
  Report Type: 
  Country: None (occurrence: None)
  Receive Date: 20110608
  Receipt Date: 20110608
  Transmission Date: 20111010
  Serious: Yes (Hospitalization)
  Sender: FDA-Public Use
  Company Number: None

PATIENT
  Age: 66 Year
  Sex: Female
  Weight: 71.8951 kg

DRUGS (1)
  1. PACLITAXEL [Suspect]
     Dosage: 90 MG/M^2 -172 MG- WEEKLY IV DRIP
     Route: 041
     Dates: start: 20110524, end: 20110531

REACTIONS (5)
  - HYPOXIA [None]
  - FLUID OVERLOAD [None]
  - NAUSEA [None]
  - DIZZINESS [None]
  - CHEST DISCOMFORT [None]
